FAERS Safety Report 7564603-8 (Version None)
Quarter: 2011Q2

REPORT INFORMATION
  Report Type: 
  Country: None (occurrence: None)
  Receive Date: 20110622
  Receipt Date: 20100803
  Transmission Date: 20111010
  Serious: Yes (Other)
  Sender: FDA-Public Use
  Company Number: US-MYLANLABS-2010S1011544

PATIENT
  Age: 54 Year
  Sex: Female

DRUGS (11)
  1. COGENTIN [Concomitant]
     Route: 048
  2. LANTUS [Concomitant]
  3. CLOZAPINE [Suspect]
     Indication: SCHIZOAFFECTIVE DISORDER
     Route: 048
     Dates: start: 20000101, end: 20100623
  4. METFORMIN HCL [Concomitant]
  5. RANITINE [Concomitant]
  6. GLIPIZIDE [Concomitant]
  7. ZOLOFT [Concomitant]
     Route: 048
  8. LISINOPRIL [Concomitant]
  9. ASPIRIN [Concomitant]
  10. RISPERDAL [Concomitant]
     Route: 048
  11. SIMVASTATIN [Concomitant]

REACTIONS (2)
  - LEUKOPENIA [None]
  - GRANULOCYTOPENIA [None]
